FAERS Safety Report 7858393-9 (Version None)
Quarter: 2011Q4

REPORT INFORMATION
  Report Type: 
  Country: None (occurrence: None)
  Receive Date: 20111027
  Receipt Date: 20111024
  Transmission Date: 20120403
  Serious: Yes (Death, Hospitalization, Disabling, Other)
  Sender: FDA-Public Use
  Company Number: PHHY2010CA71922

PATIENT
  Sex: Female

DRUGS (15)
  1. ASPIRIN [Concomitant]
     Dosage: 325 MG
     Route: 048
  2. DOCUSATE SODIUM [Concomitant]
  3. CALCIUM CARBONATE [Concomitant]
  4. TOLTERODINE TARTRATE [Concomitant]
  5. AMITRIPTYLINE HCL [Concomitant]
     Dosage: 10 MG AT BED TIME
  6. COLECALCIFEROL [Concomitant]
  7. BISACODYL [Concomitant]
  8. LACTULOSE [Concomitant]
  9. CYANOCOBALAMIN [Concomitant]
  10. ZOLEDRONOC ACID [Suspect]
     Indication: OSTEOPOROSIS
     Dates: start: 20081201
  11. BETAMETHASONE [Concomitant]
  12. FERROUS GLUCONATE [Concomitant]
  13. METOPROLOL TARTRATE [Concomitant]
  14. MOMETASONE FUROATE [Concomitant]
  15. OMEPRAZOLE [Concomitant]

REACTIONS (6)
  - SCOLIOSIS [None]
  - FALL [None]
  - AORTIC CALCIFICATION [None]
  - DEATH [None]
  - SPINAL COMPRESSION FRACTURE [None]
  - INJURY [None]
